FAERS Safety Report 6570071-5 (Version None)
Quarter: 2010Q1

REPORT INFORMATION
  Report Type: 
  Country: None (occurrence: None)
  Receive Date: 20100204
  Receipt Date: 20090615
  Transmission Date: 20100710
  Serious: Yes (Other)
  Sender: FDA-Public Use
  Company Number: CA-ROCHE-683378

PATIENT
  Age: 77 Year
  Sex: Female

DRUGS (2)
  1. BEVACIZUMAB [Suspect]
     Route: 065
  2. RANIBIZUMAB [Suspect]
     Route: 031

REACTIONS (2)
  - AORTIC DILATATION [None]
  - GLAUCOMA [None]
